FAERS Safety Report 4503985-8 (Version None)
Quarter: 2004Q4

REPORT INFORMATION
  Report Type: 
  Country: None (occurrence: None)
  Receive Date: 20041115
  Receipt Date: 20041108
  Transmission Date: 20050328
  Serious: Yes (Death)
  Sender: FDA-Public Use
  Company Number: 04-08-1203

PATIENT
  Age: 53 Year
  Sex: Male
  Weight: 99.7913 kg

DRUGS (17)
  1. CLOZAPINE [Suspect]
     Indication: SCHIZOAFFECTIVE DISORDER
     Dosage: 100MG TID ORAL
     Route: 048
     Dates: start: 20030101, end: 20040801
  2. DEPAKOTE [Concomitant]
  3. PROLIXIN [Concomitant]
  4. COGENTIN [Concomitant]
  5. LOTENSIN [Concomitant]
  6. NORVASC [Concomitant]
  7. COLACE [Concomitant]
  8. VISKEN [Concomitant]
  9. PRILOSEC [Concomitant]
  10. CENTRUM TABLETS [Concomitant]
  11. VITAMIN C [Concomitant]
  12. PROLIXIN [Concomitant]
  13. MYLANTA [Concomitant]
  14. MILK OF MAGNESIA TAB [Concomitant]
  15. LOTRIMIN CR [Concomitant]
  16. DOCUSATE SODIUM [Concomitant]
  17. PINDOLOL TABLETS [Concomitant]

REACTIONS (1)
  - MYOCARDIAL INFARCTION [None]
